FAERS Safety Report 8166781-9 (Version None)
Quarter: 2012Q1

REPORT INFORMATION
  Report Type: 
  Country: None (occurrence: None)
  Receive Date: 20120227
  Receipt Date: 20120216
  Transmission Date: 20120608
  Serious: Yes (Other)
  Sender: FDA-Public Use
  Company Number: GB-ROCHE-1042100

PATIENT
  Sex: Male

DRUGS (1)
  1. ACTIVASE [Suspect]
     Indication: THROMBOLYSIS
     Route: 042

REACTIONS (7)
  - BLOOD CREATINE PHOSPHOKINASE INCREASED [None]
  - RHABDOMYOLYSIS [None]
  - BLISTER [None]
  - SWELLING FACE [None]
  - RENAL FAILURE ACUTE [None]
  - EXTRAVASATION [None]
  - OEDEMA PERIPHERAL [None]
